FAERS Safety Report 7887881-4 (Version None)
Quarter: 2011Q4

REPORT INFORMATION
  Report Type: 
  Country: None (occurrence: None)
  Receive Date: 20111103
  Receipt Date: 20111103
  Transmission Date: 20120403
  Serious: Yes (Other)
  Sender: FDA-Public Use
  Company Number: None

PATIENT
  Age: 45 Year
  Sex: Female
  Weight: 72.574 kg

DRUGS (1)
  1. NEURONTIN [Suspect]

REACTIONS (1)
  - TYPE 2 DIABETES MELLITUS [None]
